FAERS Safety Report 22644814 (Version 1)
Quarter: 2023Q2

REPORT INFORMATION
  Report Type: Spontaneous
  Country: US (occurrence: None)
  Receive Date: 20230623
  Receipt Date: 20230623
  Transmission Date: 20230722
  Serious: No
  Sender: FDA-Public Use
  Company Number: None

PATIENT
  Sex: Female

DRUGS (1)
  1. ENBREL [Suspect]
     Active Substance: ETANERCEPT
     Dosage: OTHER FREQUENCY : EVERY7DAYS;?
     Route: 058
     Dates: start: 202109

REACTIONS (6)
  - Arthralgia [None]
  - Pain [None]
  - Pain [None]
  - Fall [None]
  - Wrist fracture [None]
  - Drug ineffective [None]
